FAERS Safety Report 8553780-8 (Version None)
Quarter: 2012Q3

REPORT INFORMATION
  Report Type: 
  Country: None (occurrence: None)
  Receive Date: 20120731
  Receipt Date: 20120724
  Transmission Date: 20120928
  Serious: Yes (Other)
  Sender: FDA-Public Use
  Company Number: RU-VIIV HEALTHCARE LIMITED-B0819097A

PATIENT
  Sex: Female

DRUGS (3)
  1. ABACAVIR [Suspect]
     Indication: HIV INFECTION
     Route: 048
     Dates: start: 20120524, end: 20120717
  2. EPIVIR [Concomitant]
     Indication: HIV INFECTION
     Dates: start: 20120524
  3. EFAVIRENZ [Concomitant]
     Indication: HIV INFECTION
     Dates: start: 20120524

REACTIONS (4)
  - PYREXIA [None]
  - NAUSEA [None]
  - DYSGEUSIA [None]
  - VOMITING [None]
